FAERS Safety Report 7099643-9 (Version None)
Quarter: 2010Q4

REPORT INFORMATION
  Report Type: 
  Country: None (occurrence: None)
  Receive Date: 20101112
  Receipt Date: 20081020
  Transmission Date: 20110411
  Serious: No
  Sender: FDA-Public Use
  Company Number: US-KINGPHARMUSA00001-K200801207

PATIENT
  Sex: Male
  Weight: 99.773 kg

DRUGS (3)
  1. AVINZA [Suspect]
     Indication: PAIN
     Dosage: UNK MG, UNK
     Route: 048
     Dates: start: 20081001
  2. MIRALAX [Interacting]
     Indication: CONSTIPATION
     Dosage: UNK, UNK
     Route: 048
     Dates: start: 20081018, end: 20081019
  3. ACCUPRIL [Concomitant]

REACTIONS (2)
  - DRUG INTERACTION [None]
  - SEDATION [None]
